FAERS Safety Report 8053577-1 (Version None)
Quarter: 2012Q1

REPORT INFORMATION
  Report Type: 
  Country: None (occurrence: None)
  Receive Date: 20120118
  Receipt Date: 20120112
  Transmission Date: 20120608
  Serious: Yes (Hospitalization)
  Sender: FDA-Public Use
  Company Number: US-MERCK-1112USA00904

PATIENT
  Age: 65 Year
  Sex: Female

DRUGS (10)
  1. AZMACORT [Concomitant]
     Route: 065
  2. VALIUM [Concomitant]
     Route: 065
  3. COZAAR [Suspect]
     Indication: HYPERTENSION
     Route: 048
     Dates: start: 20070101
  4. COZAAR [Suspect]
     Route: 048
  5. AMBIEN [Concomitant]
     Route: 065
  6. ZETIA [Suspect]
     Route: 048
  7. LIPITOR [Concomitant]
     Route: 065
  8. ACIPHEX [Concomitant]
     Route: 065
  9. HYDRODIURIL [Suspect]
     Route: 048
  10. PATANOL [Concomitant]
     Route: 065

REACTIONS (4)
  - FATIGUE [None]
  - LIMB DISCOMFORT [None]
  - BLOOD PRESSURE INCREASED [None]
  - ADVERSE EVENT [None]
